FAERS Safety Report 25258609 (Version 1)
Quarter: 2025Q2

REPORT INFORMATION
  Report Type: Spontaneous
  Country: US (occurrence: US)
  Receive Date: 20250501
  Receipt Date: 20250501
  Transmission Date: 20250717
  Serious: Yes (Death)
  Sender: TOLMAR
  Company Number: CID000000000000243

PATIENT
  Sex: Male
  Weight: 92.9864 kg

DRUGS (2)
  1. ELIGARD [Suspect]
     Active Substance: LEUPROLIDE ACETATE
     Indication: Prostate cancer
     Dosage: EXPIRATION DATE: 31-MAR-2026; UNK; UNK
     Route: 058
     Dates: end: 20241112
  2. DEVICE [Suspect]
     Active Substance: DEVICE
     Indication: Prostate cancer

REACTIONS (1)
  - Death [Fatal]
